FAERS Safety Report 8256081-0 (Version None)
Quarter: 2012Q2

REPORT INFORMATION
  Report Type: 
  Country: None (occurrence: None)
  Receive Date: 20120403
  Receipt Date: 20120328
  Transmission Date: 20120825
  Serious: Yes (Other)
  Sender: FDA-Public Use
  Company Number: US-PFIZER INC-2012080472

PATIENT
  Sex: Female
  Weight: 112.2 kg

DRUGS (2)
  1. LYRICA [Suspect]
     Indication: SURGERY
     Dosage: 75 MG, 2X/DAY
  2. INSULIN [Concomitant]
     Indication: DIABETES MELLITUS
     Dosage: 15 UNK, UNK

REACTIONS (2)
  - KNEE DEFORMITY [None]
  - OSTEOARTHRITIS [None]
